FAERS Safety Report 6891548-9 (Version None)
Quarter: 2010Q3

REPORT INFORMATION
  Report Type: 
  Country: None (occurrence: None)
  Receive Date: 20100731
  Receipt Date: 20070905
  Transmission Date: 20110219
  Serious: Yes (Other)
  Sender: FDA-Public Use
  Company Number: US-PFIZER INC-2007044395

PATIENT
  Sex: Male

DRUGS (3)
  1. NORVASC [Suspect]
     Indication: HYPERTENSION
     Dosage: DAILY
     Dates: start: 20061122
  2. NORVASC [Suspect]
     Dosage: DAILY
     Dates: start: 20061127
  3. AMLODIPINE [Suspect]
     Indication: HYPERTENSION
     Dates: start: 20070421, end: 20070525

REACTIONS (3)
  - DYSPNOEA [None]
  - PRURITUS [None]
  - RASH [None]
